FAERS Safety Report 13866723 (Version 1)
Quarter: 2017Q3

REPORT INFORMATION
  Report Type: Report from Study
  Country: US (occurrence: US)
  Receive Date: 20170814
  Receipt Date: 20170814
  Transmission Date: 20171127
  Serious: Yes (Death)
  Sender: FDA-Public Use
  Company Number: US-MYLANLABS-2017M1049647

PATIENT

DRUGS (3)
  1. RIDAFOROLIMUS [Suspect]
     Active Substance: RIDAFOROLIMUS
     Indication: FALLOPIAN TUBE CANCER
     Dosage: ON DAYS 2-5, DAYS 8-12, AND DAYS 15-19 DURING THE FIRST CYCLE OF THERAPY AND THEN 5 DAYS A WEEK
     Route: 048
  2. CARBOPLATIN. [Suspect]
     Active Substance: CARBOPLATIN
     Indication: FALLOPIAN TUBE CANCER
     Dosage: THRICE WEEKLY
     Route: 065
  3. PACLITAXEL. [Suspect]
     Active Substance: PACLITAXEL
     Indication: FALLOPIAN TUBE CANCER
     Dosage: 175MG/M 2 ON DAY 1
     Route: 042

REACTIONS (2)
  - Sepsis [Fatal]
  - Multiple organ dysfunction syndrome [Fatal]
